FAERS Safety Report 9899915 (Version 1)
Quarter: 2014Q1

REPORT INFORMATION
  Report Type: Not Available
  Country: US (occurrence: US)
  Receive Date: 20140214
  Receipt Date: 20140214
  Transmission Date: 20141002
  Serious: No
  Sender: FDA-Public Use
  Company Number: US-VIVUS-2013V1000803

PATIENT
  Age: 42 Year
  Sex: Female
  Weight: 93.52 kg

DRUGS (2)
  1. QSYMIA 3.75MG/23MG [Suspect]
     Indication: WEIGHT DECREASED
     Route: 048
     Dates: start: 20131019
  2. NUVORING [Concomitant]
     Indication: CONTRACEPTION
     Dates: start: 1993

REACTIONS (4)
  - Dyspnoea [Recovering/Resolving]
  - Hyperventilation [Recovering/Resolving]
  - Dizziness [Recovering/Resolving]
  - Chest discomfort [Not Recovered/Not Resolved]
